FAERS Safety Report 13004080 (Version 1)
Quarter: 2016Q4

REPORT INFORMATION
  Report Type: Spontaneous
  Country: US (occurrence: US)
  Receive Date: 20161206
  Receipt Date: 20161206
  Transmission Date: 20170207
  Serious: No
  Sender: FDA-Public Use
  Company Number: US-JAZZ-2016-US-018248

PATIENT
  Sex: Female

DRUGS (31)
  1. AZELASTINE [Concomitant]
     Active Substance: AZELASTINE
  2. CALCIUM + VIT D [Concomitant]
     Active Substance: CALCIUM\VITAMIN D
  3. DEXTROAMPHETAMINE                  /00016601/ [Concomitant]
     Active Substance: DEXTROAMPHETAMINE
  4. VYVANSE [Concomitant]
     Active Substance: LISDEXAMFETAMINE DIMESYLATE
  5. TYLENOL WITH CODEINE [Concomitant]
     Active Substance: ACETAMINOPHEN\CODEINE PHOSPHATE
     Indication: PRODUCT USED FOR UNKNOWN INDICATION
  6. IBUPROFEN. [Concomitant]
     Active Substance: IBUPROFEN
  7. LIDOCAINE. [Concomitant]
     Active Substance: LIDOCAINE
  8. LYSINE [Concomitant]
     Active Substance: LYSINE
  9. VITAMIN D                          /00107901/ [Concomitant]
     Active Substance: ERGOCALCIFEROL
  10. MULTIVITAMINS                      /00116001/ [Concomitant]
  11. MUCINEX SINUS-MAX PRESSURE AND PAIN [Concomitant]
     Active Substance: ACETAMINOPHEN\GUAIFENESIN\PHENYLEPHRINE HYDROCHLORIDE
  12. FLUNISOLIDE. [Concomitant]
     Active Substance: FLUNISOLIDE
  13. KETOPROFEN. [Concomitant]
     Active Substance: KETOPROFEN
  14. XYREM [Suspect]
     Active Substance: SODIUM OXYBATE
     Dosage: 4.25 G, BID (SECOND DOSE)
     Route: 048
     Dates: start: 201605
  15. ALLEGRA ALLERGY [Concomitant]
     Active Substance: FEXOFENADINE HYDROCHLORIDE
  16. GINKGO BILOBA [Concomitant]
     Active Substance: GINKGO
  17. LIDOCAINE HCL [Concomitant]
     Active Substance: LIDOCAINE HYDROCHLORIDE
  18. LORYNA [Concomitant]
     Active Substance: DROSPIRENONE\ETHINYL ESTRADIOL
  19. XYREM [Suspect]
     Active Substance: SODIUM OXYBATE
     Indication: CATAPLEXY
     Dosage: DOSE ADJUSTMENTS
     Route: 048
     Dates: start: 201510, end: 201605
  20. GUAIFENESIN. [Concomitant]
     Active Substance: GUAIFENESIN
  21. PROAIR HFA [Concomitant]
     Active Substance: ALBUTEROL SULFATE
  22. MELATONIN [Concomitant]
     Active Substance: MELATONIN
  23. XYREM [Suspect]
     Active Substance: SODIUM OXYBATE
     Indication: NARCOLEPSY
     Dosage: 2.5 G, BID
     Route: 048
     Dates: start: 201510, end: 201510
  24. MAGNESIUM GLUCONATE [Concomitant]
     Active Substance: MAGNESIUM GLUCONATE
  25. ZINC CHELATE [Concomitant]
  26. NAC                                /00082801/ [Concomitant]
  27. NIACIN. [Concomitant]
     Active Substance: NIACIN
  28. TRIAMCINOLONE [Concomitant]
     Active Substance: TRIAMCINOLONE
  29. XYREM [Suspect]
     Active Substance: SODIUM OXYBATE
     Dosage: 4 G, BID (FIRST DOSE)
     Route: 048
     Dates: start: 201605
  30. VALTREX [Concomitant]
     Active Substance: VALACYCLOVIR HYDROCHLORIDE
  31. ZOLPIDEM TARTRATE. [Concomitant]
     Active Substance: ZOLPIDEM TARTRATE

REACTIONS (4)
  - Nasal septum deviation [Recovering/Resolving]
  - Insomnia [Not Recovered/Not Resolved]
  - Neuralgia [Unknown]
  - Sinus headache [Unknown]
